FAERS Safety Report 18212015 (Version 1)
Quarter: 2020Q3

REPORT INFORMATION
  Report Type: Spontaneous
  Country: US (occurrence: US)
  Receive Date: 20200831
  Receipt Date: 20200831
  Transmission Date: 20201103
  Serious: No
  Sender: FDA-Public Use
  Company Number: US-GLAXOSMITHKLINE-US2020173761

PATIENT
  Age: 52 Year
  Sex: Female

DRUGS (1)
  1. BREO ELLIPTA [Suspect]
     Active Substance: FLUTICASONE FUROATE\VILANTEROL TRIFENATATE
     Indication: ASTHMA
     Dosage: 1 PUFF(S)
     Dates: start: 201912, end: 20200215

REACTIONS (6)
  - White blood cell count increased [Unknown]
  - Lymphocyte count increased [Unknown]
  - Neutrophil percentage increased [Unknown]
  - Monocyte percentage increased [Unknown]
  - Hepatic steatosis [Unknown]
  - Alanine aminotransferase increased [Unknown]

NARRATIVE: CASE EVENT DATE: 20200227
